FAERS Safety Report 8078605-9 (Version None)
Quarter: 2012Q1

REPORT INFORMATION
  Report Type: 
  Country: None (occurrence: None)
  Receive Date: 20120124
  Receipt Date: 20120113
  Transmission Date: 20120608
  Serious: Yes (Disabling, Other)
  Sender: FDA-Public Use
  Company Number: 1000027235

PATIENT
  Age: 85 Year
  Sex: Female

DRUGS (13)
  1. MEMANTINE HYDROCHLORIDE [Suspect]
     Indication: AMNESIA
     Dosage: 20 MG (20 MG, 1 IN 1 D), ORAL
     Route: 048
     Dates: start: 20080101
  2. AMITRIPTYLINE HCL [Suspect]
     Indication: ANALGESIC THERAPY
     Dosage: 10 MG (10 MG, 1 IN 1 D), ORAL
     Route: 048
     Dates: start: 20100228, end: 20111101
  3. ALENDRONIC ACID (ALENDRONIC ACID) (ALENDRONIC ACID) [Concomitant]
  4. CALCICHEW D3 (CALCIUM CARBONATE, CHOLECALCIFEROL, VITAMIN D3) (CALCIUM [Concomitant]
  5. PARACETAMOL (PARACETAMOL) (PARACETAMOL) [Concomitant]
  6. INDAPAMIDE [Concomitant]
  7. LAXIDO (MACROGOL 3350, POTASSIUM CHLORIDE, SODIUM CHLORIDE, SODIUM HYD [Concomitant]
  8. OMEPRAZOLE [Concomitant]
  9. PERINDOPRIL (PERINDOPRIL) (PERINDOPRIL) [Concomitant]
  10. REMINYL XL (GALANTAMINE HYDROBROMIDE) (GALANTAMINE HYDROBROMIDE) [Concomitant]
  11. SIMVASTATIN [Concomitant]
  12. ASASANTIN RETARD (ACETYLSALICYLIC ACID, DIPYRIDAMOLE) (ACETYLSALICYLIC [Concomitant]
  13. CODEINE SUL TAB [Concomitant]

REACTIONS (4)
  - ABNORMAL BEHAVIOUR [None]
  - BALANCE DISORDER [None]
  - DRUG INTERACTION [None]
  - TREMOR [None]
